FAERS Safety Report 20327646 (Version 4)
Quarter: 2022Q1

REPORT INFORMATION
  Report Type: Report from Study
  Country: FR (occurrence: FR)
  Receive Date: 20220112
  Receipt Date: 20220316
  Transmission Date: 20220423
  Serious: Yes (Hospitalization, Other)
  Sender: FDA-Public Use
  Company Number: FR-BRISTOL-MYERS SQUIBB COMPANY-BMS-2021-144807

PATIENT
  Age: 60 Year
  Sex: Male
  Weight: 70 kg

DRUGS (2)
  1. NIVOLUMAB [Suspect]
     Active Substance: NIVOLUMAB
     Indication: Oesophageal squamous cell carcinoma stage II
     Dosage: 480 MILLIGRAM
     Route: 042
     Dates: start: 20211007
  2. REGORAFENIB [Suspect]
     Active Substance: REGORAFENIB
     Indication: Oesophageal squamous cell carcinoma stage II
     Dosage: 90 MILLIGRAM
     Route: 048
     Dates: start: 20211007

REACTIONS (3)
  - Myocardial infarction [Recovered/Resolved]
  - Troponin T increased [Recovered/Resolved]
  - Atrial fibrillation [Not Recovered/Not Resolved]

NARRATIVE: CASE EVENT DATE: 20211122
